FAERS Safety Report 8014378-3 (Version None)
Quarter: 2011Q4

REPORT INFORMATION
  Report Type: 
  Country: None (occurrence: None)
  Receive Date: 20111229
  Receipt Date: 20111214
  Transmission Date: 20120403
  Serious: Yes (Other)
  Sender: FDA-Public Use
  Company Number: JP-PFIZER INC-2011310922

PATIENT
  Age: 34 Year
  Sex: Male

DRUGS (4)
  1. DOXORUBICIN HYDROCHLORIDE [Suspect]
     Indication: HODGKIN'S DISEASE MIXED CELLULARITY STAGE UNSPECIFIED
     Dosage: UNK
     Dates: start: 20100801, end: 20110101
  2. DACARBAZINE [Suspect]
     Indication: HODGKIN'S DISEASE MIXED CELLULARITY STAGE UNSPECIFIED
     Dosage: UNK
     Dates: start: 20100801, end: 20110201
  3. BLEO [Suspect]
     Indication: HODGKIN'S DISEASE MIXED CELLULARITY STAGE UNSPECIFIED
     Dosage: UNK
     Dates: start: 20100801, end: 20110101
  4. FILDESIN [Suspect]
     Indication: HODGKIN'S DISEASE MIXED CELLULARITY STAGE UNSPECIFIED
     Dosage: UNK
     Dates: start: 20100801, end: 20110101

REACTIONS (1)
  - CORONARY ARTERY STENOSIS [None]
